FAERS Safety Report 10404319 (Version 1)
Quarter: 2014Q1

REPORT INFORMATION
  Report Type: Spontaneous
  Country: US (occurrence: None)
  Receive Date: 20131226
  Receipt Date: 20131226
  Transmission Date: 20141002
  Serious: Yes (Other)
  Sender: FDA-Public Use
  Company Number: PHEH2012US011335

PATIENT
  Age: 64 Year
  Sex: Female
  Weight: 72 kg

DRUGS (3)
  1. COMBIPATCH [Suspect]
     Indication: HORMONE REPLACEMENT THERAPY
     Dosage: 50/140
     Route: 062
  2. VIVELLE DOT (ESTRADIOL) TRANS-THERAPEUTIC-SYSTEM [Concomitant]
  3. CLIMARA (ESTRADIOL) [Concomitant]

REACTIONS (15)
  - Uterine leiomyoma [None]
  - Panic attack [None]
  - Apathy [None]
  - Palpitations [None]
  - Poor quality sleep [None]
  - Product adhesion issue [None]
  - Nervousness [None]
  - Asthenia [None]
  - Progesterone decreased [None]
  - Hyperhidrosis [None]
  - Hot flush [None]
  - Drug effect incomplete [None]
  - Restlessness [None]
  - Anxiety [None]
  - Endometrial hypertrophy [None]
